FAERS Safety Report 5224900-8 (Version None)
Quarter: 2007Q1

REPORT INFORMATION
  Report Type: 
  Country: None (occurrence: None)
  Receive Date: 20070131
  Receipt Date: 20070123
  Transmission Date: 20070707
  Serious: Yes (Hospitalization)
  Sender: FDA-Public Use
  Company Number: US-ABBOTT-06P-163-0350989-00

PATIENT
  Sex: Female
  Weight: 47.67 kg

DRUGS (4)
  1. HUMIRA [Suspect]
     Indication: RHEUMATOID ARTHRITIS
     Route: 058
     Dates: start: 20040101, end: 20051101
  2. HUMIRA [Suspect]
     Route: 058
     Dates: start: 20060501, end: 20060601
  3. HUMIRA [Suspect]
     Route: 058
     Dates: start: 20061101
  4. UNSPECIFIED BLOOD PRESSURE MEDICATION [Concomitant]
     Indication: BLOOD PRESSURE

REACTIONS (5)
  - BLOOD PRESSURE DECREASED [None]
  - FALL [None]
  - LOWER LIMB FRACTURE [None]
  - OPEN WOUND [None]
  - WOUND [None]
